FAERS Safety Report 13511012 (Version 1)
Quarter: 2017Q2

REPORT INFORMATION
  Report Type: Spontaneous
  Country: BR (occurrence: BR)
  Receive Date: 20170503
  Receipt Date: 20170503
  Transmission Date: 20170830
  Serious: Yes (Hospitalization)
  Sender: FDA-Public Use
  Company Number: BR-TELIGENT, INC-IGIL20170177

PATIENT
  Age: 6 Year
  Sex: Female
  Weight: 24 kg

DRUGS (8)
  1. CEFTRIAXONE. [Suspect]
     Active Substance: CEFTRIAXONE
     Indication: PRODUCT USED FOR UNKNOWN INDICATION
     Route: 042
     Dates: start: 20130724, end: 20130725
  2. IBUPROFEN. [Suspect]
     Active Substance: IBUPROFEN
     Indication: PRODUCT USED FOR UNKNOWN INDICATION
     Route: 065
  3. DRAMIN B6 DL [Concomitant]
     Indication: PRODUCT USED FOR UNKNOWN INDICATION
     Route: 065
     Dates: start: 20130724
  4. AMOXICILLIN. [Suspect]
     Active Substance: AMOXICILLIN
     Indication: TONSILLITIS
     Route: 065
  5. ZINACEF [Suspect]
     Active Substance: CEFUROXIME SODIUM
     Indication: PNEUMONIA BACTERIAL
     Dosage: 800 MG THREE TIMES DAILY
     Route: 042
     Dates: start: 20130725, end: 20130725
  6. CEFTRIAXONE. [Suspect]
     Active Substance: CEFTRIAXONE
     Route: 042
     Dates: start: 20130726
  7. DIPIRONE [Suspect]
     Active Substance: METAMIZOLE SODIUM
     Indication: PRODUCT USED FOR UNKNOWN INDICATION
     Route: 048
  8. RINOSORO [Concomitant]
     Indication: PRODUCT USED FOR UNKNOWN INDICATION
     Route: 065
     Dates: start: 20130724

REACTIONS (4)
  - Pruritus [Recovered/Resolved]
  - Skin lesion [Unknown]
  - Rash papular [Recovered/Resolved]
  - Condition aggravated [Recovered/Resolved]

NARRATIVE: CASE EVENT DATE: 20130726
